FAERS Safety Report 11103271 (Version 4)
Quarter: 2015Q2

REPORT INFORMATION
  Report Type: Spontaneous
  Country: JP (occurrence: JP)
  Receive Date: 20150511
  Receipt Date: 20150626
  Transmission Date: 20150821
  Serious: Yes (Other)
  Sender: FDA-Public Use
  Company Number: JP-PFIZER INC-2015159618

PATIENT
  Age: 79 Year
  Sex: Male

DRUGS (9)
  1. ADOAIR [Concomitant]
     Active Substance: FLUTICASONE PROPIONATE\SALMETEROL XINAFOATE
     Dosage: 250 ?G, UNK
  2. FEBURIC [Concomitant]
     Active Substance: FEBUXOSTAT
     Dosage: UNK
  3. MAGMITT [Concomitant]
     Active Substance: MAGNESIUM OXIDE
     Dosage: 250 MG, UNK
  4. NU-LOTAN [Concomitant]
     Active Substance: LOSARTAN POTASSIUM
     Dosage: 50 MG, UNK
  5. LIPITOR [Suspect]
     Active Substance: ATORVASTATIN CALCIUM
     Dosage: 10 MG, 1X/DAY
     Route: 048
     Dates: start: 2006, end: 20150502
  6. MUCOFILIN [Concomitant]
     Dosage: UNK
  7. SPIRIVA [Concomitant]
     Active Substance: TIOTROPIUM BROMIDE MONOHYDRATE
     Dosage: UNK
  8. CIBENOL [Suspect]
     Active Substance: CIFENLINE
     Dosage: 100 MG, 3X/DAY
     Route: 048
     Dates: start: 2010, end: 20150502
  9. NORVASC [Concomitant]
     Active Substance: AMLODIPINE BESYLATE
     Dosage: 5 MG, UNK

REACTIONS (3)
  - Interstitial lung disease [Unknown]
  - Emphysema [Unknown]
  - Pulmonary mass [Unknown]

NARRATIVE: CASE EVENT DATE: 2012
